FAERS Safety Report 8279031-X (Version None)
Quarter: 2012Q2

REPORT INFORMATION
  Report Type: 
  Country: None (occurrence: None)
  Receive Date: 20120412
  Receipt Date: 20110425
  Transmission Date: 20120825
  Serious: No
  Sender: FDA-Public Use
  Company Number: US-ASTRAZENECA-2011SE17694

PATIENT
  Age: 72 Year
  Sex: Female

DRUGS (2)
  1. NEXIUM [Suspect]
     Route: 048
  2. ZESTRIL [Suspect]
     Route: 048

REACTIONS (11)
  - TONGUE COATED [None]
  - INCREASED TENDENCY TO BRUISE [None]
  - CONTUSION [None]
  - ASTHENIA [None]
  - MUSCULOSKELETAL DISCOMFORT [None]
  - URINARY TRACT INFECTION [None]
  - CANDIDIASIS [None]
  - NASOPHARYNGITIS [None]
  - SINUSITIS [None]
  - DRY MOUTH [None]
  - HERNIA [None]
